FAERS Safety Report 18302802 (Version 1)
Quarter: 2020Q3

REPORT INFORMATION
  Report Type: Spontaneous
  Country: PT (occurrence: PT)
  Receive Date: 20200923
  Receipt Date: 20200923
  Transmission Date: 20201103
  Serious: Yes (Other)
  Sender: FDA-Public Use
  Company Number: PT-FRESENIUS KABI-FK202009751

PATIENT
  Age: 32 Year
  Sex: Female

DRUGS (5)
  1. VANDETANIB. [Concomitant]
     Active Substance: VANDETANIB
     Route: 065
  2. GEMCITABINE. [Suspect]
     Active Substance: GEMCITABINE
     Indication: LUNG CANCER METASTATIC
     Route: 065
  3. PEMBROLIZUMAB. [Concomitant]
     Active Substance: PEMBROLIZUMAB
     Route: 065
  4. PEMBROLIZUMAB. [Concomitant]
     Active Substance: PEMBROLIZUMAB
     Indication: HEPATIC CANCER
     Route: 065
  5. VANDETANIB. [Concomitant]
     Active Substance: VANDETANIB
     Indication: HEPATIC CANCER
     Route: 065

REACTIONS (1)
  - Deep vein thrombosis [Unknown]
